FAERS Safety Report 15092670 (Version 1)
Quarter: 2018Q2

REPORT INFORMATION
  Report Type: Other
  Country: None (occurrence: AT)
  Receive Date: 20180629
  Receipt Date: 20180629
  Transmission Date: 20180711
  Serious: Yes (Other)
  Sender: FDA-Public Use
  Company Number: AT-GALEN LIMITED-AE-2018-0863

PATIENT
  Age: 7 Year
  Sex: Female

DRUGS (3)
  1. CYTARABINE. [Suspect]
     Active Substance: CYTARABINE
     Indication: ACUTE MYELOID LEUKAEMIA
  2. DAUNOXOME [Suspect]
     Active Substance: DAUNORUBICIN CITRATE
     Indication: ACUTE MYELOID LEUKAEMIA
  3. ETOPOSIDE. [Suspect]
     Active Substance: ETOPOSIDE
     Indication: ACUTE MYELOID LEUKAEMIA

REACTIONS (3)
  - Histiocytosis haematophagic [Recovered/Resolved]
  - Product use issue [None]
  - Product use in unapproved indication [None]

NARRATIVE: CASE EVENT DATE: 2012
